FAERS Safety Report 16473783 (Version 1)
Quarter: 2019Q2

REPORT INFORMATION
  Report Type: Spontaneous
  Country: US (occurrence: US)
  Receive Date: 20190515
  Receipt Date: 20190515
  Transmission Date: 20190711
  Serious: Yes (Hospitalization)
  Sender: FDA-Public Use
  Company Number: None

PATIENT
  Age: 68 Year
  Sex: Male

DRUGS (1)
  1. LEDIP/SOFOSB TAB 90-400MG TAB (2X14) [Suspect]
     Active Substance: LEDIPASVIR\SOFOSBUVIR
     Route: 048
     Dates: start: 201904

REACTIONS (3)
  - Pleural effusion [None]
  - Renal disorder [None]
  - Therapy cessation [None]

NARRATIVE: CASE EVENT DATE: 20190515
